FAERS Safety Report 6744916-X (Version None)
Quarter: 2010Q2

REPORT INFORMATION
  Report Type: 
  Country: None (occurrence: None)
  Receive Date: 20100527
  Receipt Date: 20100518
  Transmission Date: 20101027
  Serious: Yes (Death)
  Sender: FDA-Public Use
  Company Number: US-AMGEN-QUU413200

PATIENT
  Sex: Male

DRUGS (4)
  1. NPLATE [Suspect]
     Indication: IDIOPATHIC THROMBOCYTOPENIC PURPURA
     Dates: start: 20100429
  2. CORTICOSTEROIDS [Concomitant]
     Dates: start: 20100301
  3. DANAZOL [Concomitant]
     Dates: start: 20100201
  4. RITUXIMAB [Concomitant]
     Dates: start: 20100419

REACTIONS (1)
  - NEOPLASM MALIGNANT [None]
